FAERS Safety Report 6137240-X (Version None)
Quarter: 2009Q1

REPORT INFORMATION
  Report Type: 
  Country: None (occurrence: None)
  Receive Date: 20090330
  Receipt Date: 20090317
  Transmission Date: 20090719
  Serious: Yes (Hospitalization)
  Sender: FDA-Public Use
  Company Number: DE-JNJFOC-20090306631

PATIENT
  Age: 78 Year
  Sex: Female
  Weight: 100 kg

DRUGS (14)
  1. TRAMADOL HCL [Suspect]
     Indication: DRUG USE FOR UNKNOWN INDICATION
     Route: 048
  2. LAMICTAL [Interacting]
     Route: 048
  3. LAMICTAL [Interacting]
     Route: 048
  4. LAMICTAL [Interacting]
     Route: 048
  5. LAMICTAL [Interacting]
     Route: 048
  6. LAMICTAL [Interacting]
     Indication: DRUG USE FOR UNKNOWN INDICATION
     Route: 048
  7. VALPROATE SODIUM [Interacting]
     Route: 048
  8. VALPROATE SODIUM [Interacting]
     Route: 048
  9. VALPROATE SODIUM [Interacting]
     Indication: DRUG USE FOR UNKNOWN INDICATION
     Route: 048
  10. TAVOR [Interacting]
     Route: 048
  11. TAVOR [Interacting]
     Indication: DRUG USE FOR UNKNOWN INDICATION
     Route: 048
  12. VOLTAREN [Concomitant]
     Route: 065
  13. PANTOZOL [Concomitant]
     Route: 065
  14. REPAGLINIDE [Concomitant]
     Route: 065

REACTIONS (6)
  - BALANCE DISORDER [None]
  - BRADYPHRENIA [None]
  - DISORIENTATION [None]
  - DRUG INTERACTION [None]
  - GAIT DISTURBANCE [None]
  - SOMNOLENCE [None]
